FAERS Safety Report 6039745-9 (Version None)
Quarter: 2009Q1

REPORT INFORMATION
  Report Type: 
  Country: None (occurrence: None)
  Receive Date: 20090116
  Receipt Date: 20090105
  Transmission Date: 20090719
  Serious: Yes (Other)
  Sender: FDA-Public Use
  Company Number: US-ROCHE-606387

PATIENT
  Sex: Male
  Weight: 59 kg

DRUGS (1)
  1. CAPECITABINE [Suspect]
     Dosage: THREE TABLETS DAILY
     Route: 065
     Dates: start: 20080415, end: 20081205

REACTIONS (1)
  - MALIGNANT NEOPLASM PROGRESSION [None]
